FAERS Safety Report 22366786 (Version 1)
Quarter: 2023Q2

REPORT INFORMATION
  Report Type: Spontaneous
  Country: CN (occurrence: CN)
  Receive Date: 20230525
  Receipt Date: 20230525
  Transmission Date: 20230722
  Serious: Yes (Congenital Anomaly, Other)
  Sender: FDA-Public Use
  Company Number: CN-PFIZER INC-PV202300090451

PATIENT
  Age: 52 Year
  Sex: Female
  Weight: 57 kg

DRUGS (1)
  1. CYTARABINE [Suspect]
     Active Substance: CYTARABINE
     Indication: Therapeutic procedure
     Dosage: 100 MG, 2X/DAY
     Route: 041
     Dates: start: 20230417, end: 20230421

REACTIONS (6)
  - Hypersensitivity [Recovering/Resolving]
  - Epistaxis [Recovering/Resolving]
  - Nausea [Recovering/Resolving]
  - Feeling cold [Recovering/Resolving]
  - Hyperhidrosis [Recovering/Resolving]
  - Pallor [Recovering/Resolving]

NARRATIVE: CASE EVENT DATE: 20230421
